FAERS Safety Report 18744724 (Version 2)
Quarter: 2021Q1

REPORT INFORMATION
  Report Type: Spontaneous
  Country: US (occurrence: US)
  Receive Date: 20210115
  Receipt Date: 20210215
  Transmission Date: 20210419
  Serious: Yes (Other)
  Sender: FDA-Public Use
  Company Number: US-JNJFOC-20210108166

PATIENT
  Age: 6 Decade
  Sex: Male
  Weight: 90.8 kg

DRUGS (14)
  1. SIMVASTATIN. [Concomitant]
     Active Substance: SIMVASTATIN
     Dosage: IN EVENING
     Route: 048
     Dates: start: 20200609, end: 202010
  2. FENOFIBRIC ACID. [Concomitant]
     Active Substance: FENOFIBRIC ACID
     Route: 048
     Dates: start: 202006, end: 202010
  3. VITAMIN D3 [Concomitant]
     Active Substance: CHOLECALCIFEROL
  4. INVEGA SUSTENNA [Suspect]
     Active Substance: PALIPERIDONE PALMITATE
     Route: 030
  5. INVEGA SUSTENNA [Suspect]
     Active Substance: PALIPERIDONE PALMITATE
     Route: 030
  6. INVEGA SUSTENNA [Suspect]
     Active Substance: PALIPERIDONE PALMITATE
     Route: 030
  7. IRON [Concomitant]
     Active Substance: IRON
     Dosage: 65 MG IRON PLUS 325 MG FERROUS SULFATE
     Dates: end: 202010
  8. CALCIUM [Concomitant]
     Active Substance: CALCIUM
  9. INVEGA SUSTENNA [Suspect]
     Active Substance: PALIPERIDONE PALMITATE
     Indication: SCHIZOPHRENIA
     Route: 030
     Dates: start: 2018
  10. VASCEPA [Concomitant]
     Active Substance: ICOSAPENT ETHYL
     Dosage: 2 CAPSULES WITH MEALS
     Route: 048
     Dates: start: 20200826, end: 202010
  11. ACETAMINOPHEN. [Concomitant]
     Active Substance: ACETAMINOPHEN
  12. CALCIUM WITH VITAMIN D [Concomitant]
     Active Substance: CALCIUM\VITAMIN D
     Dates: end: 202010
  13. DAILY PROBIOTIC DIETARY SUPPLEMENT [Concomitant]
     Dates: end: 202010
  14. VITAMIN C [Concomitant]
     Active Substance: ASCORBIC ACID

REACTIONS (13)
  - Gait disturbance [Unknown]
  - Weight increased [Unknown]
  - Anal incontinence [Not Recovered/Not Resolved]
  - Diarrhoea [Not Recovered/Not Resolved]
  - Eye movement disorder [Unknown]
  - Hallucination [Not Recovered/Not Resolved]
  - Dysphemia [Not Recovered/Not Resolved]
  - Abnormal behaviour [Unknown]
  - Hypokinesia [Unknown]
  - Sleep talking [Unknown]
  - Poor personal hygiene [Unknown]
  - Logorrhoea [Unknown]
  - Insomnia [Unknown]

NARRATIVE: CASE EVENT DATE: 2019
